FAERS Safety Report 22228112 (Version 1)
Quarter: 2023Q2

REPORT INFORMATION
  Report Type: Report from Study
  Country: AU (occurrence: AU)
  Receive Date: 20230419
  Receipt Date: 20230419
  Transmission Date: 20230722
  Serious: Yes (Life-Threatening, Other)
  Sender: FDA-Public Use
  Company Number: AU-PFIZER INC-PV202300070405

PATIENT
  Age: 2 Year
  Sex: Female

DRUGS (1)
  1. NALOXONE HCL [Suspect]
     Active Substance: NALOXONE HYDROCHLORIDE
     Indication: Toxicity to various agents
     Dosage: 10 MG
     Route: 042

REACTIONS (1)
  - Drug ineffective [Unknown]
